FAERS Safety Report 24286355 (Version 1)
Quarter: 2024Q3

REPORT INFORMATION
  Report Type: Spontaneous
  Country: US (occurrence: US)
  Receive Date: 20240905
  Receipt Date: 20240905
  Transmission Date: 20241017
  Serious: No
  Sender: ULTRAGENYX PHARMACEUTICAL
  Company Number: US-ULTRAGENYX PHARMACEUTICAL INC.-US-UGX-23-00954

PATIENT
  Sex: Female
  Weight: 58.97 kg

DRUGS (1)
  1. DOJOLVI [Suspect]
     Active Substance: TRIHEPTANOIN
     Indication: Metabolic disorder
     Dosage: 25 MILLILITER, TID
     Route: 048
     Dates: start: 20220401

REACTIONS (2)
  - Product dose omission issue [Unknown]
  - Off label use [Unknown]
